FAERS Safety Report 24205967 (Version 1)
Quarter: 2024Q3

REPORT INFORMATION
  Report Type: Spontaneous
  Country: US (occurrence: US)
  Receive Date: 20240813
  Receipt Date: 20240813
  Transmission Date: 20241016
  Serious: Yes (Life-Threatening, Other)
  Sender: NOVARTIS
  Company Number: US-002147023-NVSC2024US163428

PATIENT

DRUGS (1)
  1. GLEEVEC [Suspect]
     Active Substance: IMATINIB MESYLATE
     Indication: Product used for unknown indication
     Dosage: UNK
     Route: 065

REACTIONS (8)
  - Feeling abnormal [Unknown]
  - Chronic myeloid leukaemia transformation [Unknown]
  - Gene mutation [Unknown]
  - Pain [Unknown]
  - Fatigue [Unknown]
  - Pleural effusion [Unknown]
  - Insomnia [Unknown]
  - Rib deformity [Unknown]
